FAERS Safety Report 8106565-0 (Version None)
Quarter: 2012Q1

REPORT INFORMATION
  Report Type: 
  Country: None (occurrence: None)
  Receive Date: 20120202
  Receipt Date: 20120127
  Transmission Date: 20120608
  Serious: Yes (Other)
  Sender: FDA-Public Use
  Company Number: US-AMGEN-USASP2011058739

PATIENT
  Age: 61 Year
  Sex: Female

DRUGS (2)
  1. ENBREL [Suspect]
     Indication: RHEUMATOID ARTHRITIS
     Dosage: 50 MG, QWK
     Dates: start: 20110802
  2. ENBREL [Suspect]
     Dosage: 50 MG, QWK
     Dates: start: 20110801

REACTIONS (7)
  - UPPER-AIRWAY COUGH SYNDROME [None]
  - RHINORRHOEA [None]
  - SINUSITIS [None]
  - PAIN [None]
  - VISION BLURRED [None]
  - HEADACHE [None]
  - SNEEZING [None]
